FAERS Safety Report 6556229-X (Version None)
Quarter: 2010Q1

REPORT INFORMATION
  Report Type: 
  Country: None (occurrence: None)
  Receive Date: 20100128
  Receipt Date: 20090730
  Transmission Date: 20100710
  Serious: Yes (Hospitalization)
  Sender: FDA-Public Use
  Company Number: US-TEVA-204098USA

PATIENT
  Sex: Male

DRUGS (5)
  1. COPAXONE [Suspect]
     Indication: MULTIPLE SCLEROSIS
     Route: 058
     Dates: start: 20080101
  2. COPAXONE [Concomitant]
  3. INTERFERON BETA [Suspect]
     Indication: MULTIPLE SCLEROSIS
     Dosage: POWDER
     Route: 030
     Dates: start: 19960101
  4. INTERFERON BETA [Suspect]
     Dosage: LIQUID
     Route: 030
     Dates: end: 20080101
  5. INTERFERON BETA [Suspect]
     Route: 030
     Dates: start: 20080101, end: 20090703

REACTIONS (7)
  - DIARRHOEA [None]
  - EATING DISORDER [None]
  - GAIT DISTURBANCE [None]
  - HEADACHE [None]
  - PHOTOPHOBIA [None]
  - VOMITING [None]
  - WEIGHT DECREASED [None]
